FAERS Safety Report 6261456-5 (Version None)
Quarter: 2009Q3

REPORT INFORMATION
  Report Type: 
  Country: None (occurrence: None)
  Receive Date: 20090709
  Receipt Date: 20090703
  Transmission Date: 20100115
  Serious: Yes (Hospitalization)
  Sender: FDA-Public Use
  Company Number: BR-ASTRAZENECA-2009UW18714

PATIENT
  Age: 29 Year
  Sex: Female
  Weight: 72 kg

DRUGS (5)
  1. SYMBICORT [Suspect]
     Indication: ASTHMA
     Dosage: 160/4.5 UG
     Route: 055
     Dates: start: 20090301
  2. OMEPRAZOLE [Suspect]
     Route: 048
     Dates: start: 20090401, end: 20090601
  3. METICORTEN [Concomitant]
     Route: 048
     Dates: start: 20070801
  4. PREDNISOLONE [Concomitant]
     Route: 048
     Dates: start: 20070801
  5. BUDESONIDE [Concomitant]
     Route: 048
     Dates: start: 20070801

REACTIONS (7)
  - COUGH [None]
  - EAR PAIN [None]
  - LYMPHOCYTE COUNT DECREASED [None]
  - OROPHARYNGEAL PAIN [None]
  - URINARY TRACT INFECTION [None]
  - WHEEZING [None]
  - WHITE BLOOD CELL COUNT INCREASED [None]
